FAERS Safety Report 8447146-9 (Version None)
Quarter: 2012Q2

REPORT INFORMATION
  Report Type: 
  Country: None (occurrence: None)
  Receive Date: 20120619
  Receipt Date: 20120614
  Transmission Date: 20120825
  Serious: No
  Sender: FDA-Public Use
  Company Number: US-PFIZER INC-2012144662

PATIENT
  Sex: Male
  Weight: 92.971 kg

DRUGS (14)
  1. NORVASC [Suspect]
     Indication: HYPERTENSION
     Dosage: UNK
     Dates: end: 20120601
  2. MULTI-VITAMINS [Concomitant]
     Indication: VITAMIN SUPPLEMENTATION
     Dosage: UNK, DAILY IN THE MORNING
  3. ZINC [Concomitant]
     Dosage: UNK, DAILY IN THE MORNING
  4. METFORMIN [Concomitant]
     Indication: DIABETES MELLITUS
     Dosage: 1000 MG, 2X/DAY
  5. EXTRA STRENGTH TYLENOL [Concomitant]
     Indication: PAIN
  6. ASCORBIC ACID [Concomitant]
     Dosage: UNK, DAILY IN THE MORNING
  7. NIASPAN [Concomitant]
  8. EXTRA STRENGTH TYLENOL [Concomitant]
     Indication: HEADACHE
     Dosage: UNK, AS NEEDED
  9. EXTRA STRENGTH TYLENOL [Concomitant]
     Indication: BACK PAIN
  10. LIPITOR [Concomitant]
     Indication: HYPERCHOLESTEROLAEMIA
  11. LOVAZA [Concomitant]
  12. LISINOPRIL [Concomitant]
     Indication: RENAL DISORDER
     Dosage: UNK, DAILY AT BED TIME
  13. VITAMIN D [Concomitant]
     Dosage: UNK, 2X/DAY
  14. ACETYLSALICYLIC ACID [Concomitant]
     Indication: ANTICOAGULANT THERAPY
     Dosage: 325 MG, DAILY AT NIGHT

REACTIONS (1)
  - HYPOVITAMINOSIS [None]
